FAERS Safety Report 23763520 (Version 2)
Quarter: 2024Q2

REPORT INFORMATION
  Report Type: Spontaneous
  Country: MY (occurrence: MY)
  Receive Date: 20240419
  Receipt Date: 20240501
  Transmission Date: 20240715
  Serious: Yes (Death, Hospitalization)
  Sender: FDA-Public Use
  Company Number: MY-BAYER-2024A056947

PATIENT
  Age: 35 Year
  Sex: Male

DRUGS (2)
  1. VITRAKVI [Suspect]
     Active Substance: LAROTRECTINIB
     Indication: Lung carcinoma cell type unspecified stage IV
     Dosage: UNK
     Dates: start: 20240409
  2. ENTRECTINIB [Concomitant]
     Active Substance: ENTRECTINIB
     Dosage: UNK

REACTIONS (5)
  - Lung neoplasm malignant [Fatal]
  - Dyspnoea [None]
  - Respiratory failure [None]
  - Abdominal mass [None]
  - Ascites [None]

NARRATIVE: CASE EVENT DATE: 20240411
